FAERS Safety Report 7299592-7 (Version None)
Quarter: 2011Q1

REPORT INFORMATION
  Report Type: 
  Country: None (occurrence: None)
  Receive Date: 20110208
  Receipt Date: 20110131
  Transmission Date: 20110831
  Serious: Yes (Other)
  Sender: FDA-Public Use
  Company Number: USA/USA/11/0017303

PATIENT
  Age: 81 Year
  Sex: Male
  Weight: 79.3795 kg

DRUGS (9)
  1. CIPROFLOXACIN [Suspect]
     Indication: RESPIRATORY DISORDER
     Dosage: 500 MG, 2 IN 1 D, ORAL
     Route: 048
     Dates: start: 20100801
  2. PLAVIX [Concomitant]
  3. FISH OIL (FISH OIL) [Concomitant]
  4. OMEPRAZOLE [Concomitant]
  5. ATROVASTATIN (ATORVASTATIN) [Concomitant]
  6. TAMSULOSIN HCL [Concomitant]
  7. ALPRAZOLAM [Concomitant]
  8. ASPIRIN [Concomitant]
  9. PROPOXYPHNE [Concomitant]

REACTIONS (5)
  - CONDITION AGGRAVATED [None]
  - NEURALGIA [None]
  - BOWEL MOVEMENT IRREGULARITY [None]
  - DIVERTICULUM [None]
  - NECK PAIN [None]
